FAERS Safety Report 5579580-9 (Version None)
Quarter: 2008Q1

REPORT INFORMATION
  Report Type: 
  Country: None (occurrence: None)
  Receive Date: 20080102
  Receipt Date: 20071228
  Transmission Date: 20080703
  Serious: Yes (Death)
  Sender: FDA-Public Use
  Company Number: DE-SANOFI-SYNTHELABO-F01200701768

PATIENT
  Sex: Male

DRUGS (3)
  1. CAPECITABINE [Suspect]
     Dosage: UNK
  2. DOCETAXEL [Suspect]
     Dosage: DAYS 1, 8, 22 65 MG
     Route: 041
  3. OXALIPLATIN [Suspect]
     Indication: METASTATIC GASTRIC CANCER
     Dosage: DAYS 1, 8, 22 135 MG
     Route: 041

REACTIONS (1)
  - DEATH [None]
